FAERS Safety Report 16954927 (Version 1)
Quarter: 2019Q4

REPORT INFORMATION
  Report Type: Report from Study
  Country: CN (occurrence: CN)
  Receive Date: 20191024
  Receipt Date: 20191024
  Transmission Date: 20200122
  Serious: Yes (Other)
  Sender: FDA-Public Use
  Company Number: CN-IPSEN BIOPHARMACEUTICALS, INC.-2019-19191

PATIENT
  Sex: Male

DRUGS (2)
  1. LIPOSOMAL IRINOTECAN [Suspect]
     Active Substance: IRINOTECAN HYDROCHLORIDE
     Indication: PANCREATIC CARCINOMA
     Dosage: NOT REPORTED
     Route: 065
     Dates: start: 20190628, end: 20190628
  2. LIPOSOMAL IRINOTECAN [Suspect]
     Active Substance: IRINOTECAN HYDROCHLORIDE
     Dosage: NOT REPORTED
     Route: 065
     Dates: start: 20190717, end: 20190717

REACTIONS (1)
  - Adverse event [Unknown]

NARRATIVE: CASE EVENT DATE: 2018
